FAERS Safety Report 7474859-8 (Version None)
Quarter: 2011Q2

REPORT INFORMATION
  Report Type: 
  Country: None (occurrence: None)
  Receive Date: 20110512
  Receipt Date: 20110328
  Transmission Date: 20111010
  Serious: Yes (Hospitalization, Other)
  Sender: FDA-Public Use
  Company Number: US-BAYER-201041463NA

PATIENT
  Age: 24 Year
  Sex: Female
  Weight: 113.38 kg

DRUGS (11)
  1. NEXIUM [Concomitant]
  2. TOPROL-XL [Concomitant]
     Dosage: 50 MG, QD
  3. YAZ [Suspect]
     Indication: ACNE
     Dosage: UNK UNK, QD
     Dates: start: 20030131
  4. YASMIN [Suspect]
     Indication: ACNE
     Dosage: UNK
     Dates: start: 20020101, end: 20040101
  5. KARIVA [Concomitant]
  6. YAZ [Suspect]
     Indication: CONTRACEPTION
  7. PAXIL [Concomitant]
  8. YASMIN [Suspect]
     Indication: PREMENSTRUAL SYNDROME
  9. YASMIN [Suspect]
     Indication: CONTRACEPTION
  10. YAZ [Suspect]
     Indication: PREMENSTRUAL SYNDROME
  11. CIPRO [Concomitant]
     Indication: URINARY TRACT INFECTION

REACTIONS (4)
  - CHOLECYSTITIS CHRONIC [None]
  - GALLBLADDER DISORDER [None]
  - BILIARY DYSKINESIA [None]
  - INJURY [None]
